APPROVED DRUG PRODUCT: ESTRADIOL
Active Ingredient: ESTRADIOL
Strength: 0.06% (1.25GM/ACTIVATION)
Dosage Form/Route: GEL, METERED;TRANSDERMAL
Application: A216160 | Product #001 | TE Code: AB
Applicant: SOLARIS PHARMA CORP
Approved: Apr 22, 2024 | RLD: No | RS: No | Type: RX